FAERS Safety Report 6013864-5 (Version None)
Quarter: 2008Q4

REPORT INFORMATION
  Report Type: 
  Country: None (occurrence: None)
  Receive Date: 20081219
  Receipt Date: 20081217
  Transmission Date: 20090506
  Serious: Yes (Other)
  Sender: FDA-Public Use
  Company Number: A0761001A

PATIENT
  Age: 56 Year
  Sex: Female

DRUGS (2)
  1. NIQUITIN 21MG [Suspect]
     Indication: SMOKING CESSATION THERAPY
     Dosage: 1PAT PER DAY
     Route: 062
     Dates: start: 20081209
  2. RIVOTRIL [Concomitant]
     Dosage: 2MG TWICE PER DAY
     Route: 048

REACTIONS (4)
  - ANXIETY [None]
  - DEAFNESS [None]
  - DRUG ADMINISTRATION ERROR [None]
  - ILL-DEFINED DISORDER [None]
